FAERS Safety Report 6903929-5 (Version None)
Quarter: 2010Q3

REPORT INFORMATION
  Report Type: 
  Country: None (occurrence: None)
  Receive Date: 20100804
  Receipt Date: 20090210
  Transmission Date: 20110219
  Serious: No
  Sender: FDA-Public Use
  Company Number: US-PFIZER INC-2009169405

PATIENT
  Sex: Female
  Weight: 94.8 kg

DRUGS (6)
  1. LYRICA [Suspect]
     Indication: OCCIPITAL NEURALGIA
     Dosage: 75 MG, 2X/DAY
     Dates: start: 20090208
  2. ZONEGRAN [Concomitant]
     Dosage: UNK
  3. DEPAKOTE [Concomitant]
     Indication: MIGRAINE
     Dosage: UNK
  4. ZANAFLEX [Concomitant]
     Indication: MUSCLE SPASMS
     Dosage: UNK
  5. IBUPROFEN [Concomitant]
     Indication: MIGRAINE
     Dosage: UNK
  6. LEVOTHYROXINE [Concomitant]
     Indication: HYPOTHYROIDISM
     Dosage: UNK

REACTIONS (3)
  - DIPLOPIA [None]
  - DIZZINESS [None]
  - FEELING DRUNK [None]
